FAERS Safety Report 19799385 (Version 1)
Quarter: 2021Q3

REPORT INFORMATION
  Report Type: Spontaneous
  Country: US (occurrence: US)
  Receive Date: 20210907
  Receipt Date: 20210907
  Transmission Date: 20211014
  Serious: No
  Sender: FDA-Public Use
  Company Number: US-NEPHRON STERILE COMPOUNDING CENTER-2118068

PATIENT

DRUGS (1)
  1. NOREPINEPHRINE BITARTRATE 4MG IN 0.9% SODIUM CHLORIDE 250ML [Suspect]
     Active Substance: NOREPINEPHRINE BITARTRATE\SODIUM CHLORIDE
     Route: 041

REACTIONS (2)
  - Hypotension [Recovered/Resolved]
  - Bradycardia [Recovered/Resolved]

NARRATIVE: CASE EVENT DATE: 20210825
